FAERS Safety Report 4827834-3 (Version None)
Quarter: 2005Q4

REPORT INFORMATION
  Report Type: 
  Country: None (occurrence: None)
  Receive Date: 20051114
  Receipt Date: 20051114
  Transmission Date: 20060501
  Serious: Yes (Life-Threatening, Hospitalization)
  Sender: FDA-Public Use
  Company Number: None

PATIENT
  Age: 78 Year
  Sex: Female
  Weight: 65 kg

DRUGS (1)
  1. ENALAPRIL 10 MG TABLE UDL [Suspect]
     Indication: RENAL FAILURE
     Dosage: 20 MG Q12 H PO
     Route: 048
     Dates: start: 20050905, end: 20050906

REACTIONS (1)
  - ANGIONEUROTIC OEDEMA [None]
